FAERS Safety Report 9967080 (Version 1)
Quarter: 2014Q1

REPORT INFORMATION
  Report Type: Other
  Country: US (occurrence: US)
  Receive Date: 20140305
  Receipt Date: 20140305
  Transmission Date: 20141002
  Serious: Yes (Death)
  Sender: FDA-Public Use
  Company Number: US-FRI-1000054875

PATIENT
  Age: 45 Year
  Sex: Female

DRUGS (3)
  1. ESCITALOPRAM [Suspect]
  2. ALPRAZOLAM [Suspect]
  3. ZOLPIDEM [Suspect]

REACTIONS (2)
  - Completed suicide [Fatal]
  - Cardio-respiratory arrest [Fatal]
